FAERS Safety Report 9788096 (Version 1)
Quarter: 2013Q4

REPORT INFORMATION
  Report Type: Spontaneous
  Country: US (occurrence: None)
  Receive Date: 20131227
  Receipt Date: 20131227
  Transmission Date: 20140711
  Serious: Yes (Hospitalization)
  Sender: FDA-Public Use
  Company Number: None

PATIENT
  Age: 49 Year
  Sex: Male
  Weight: 158.7 kg

DRUGS (10)
  1. WARFARIN [Suspect]
     Indication: FACTOR V DEFICIENCY
     Dosage: CHRONIC USE 11 MG DAILY PO
     Route: 048
  2. WARFARIN [Suspect]
     Indication: ROUX LOOP CONVERSION
     Dosage: CHRONIC USE 11 MG DAILY PO
     Route: 048
  3. EFFIENT [Suspect]
     Indication: STENT PLACEMENT
     Dosage: CHRONIC USE 10 MG DAILY PO
     Route: 048
  4. ASPIRIN [Suspect]
  5. LOVENOX [Suspect]
  6. INSULIN [Concomitant]
  7. PRAVACHOL [Concomitant]
  8. AMLODIPINE [Concomitant]
  9. METFORMIN [Concomitant]
  10. NEXIUM [Concomitant]

REACTIONS (3)
  - Retroperitoneal haematoma [None]
  - Myocardial infarction [None]
  - Deep vein thrombosis [None]
